FAERS Safety Report 16722057 (Version 1)
Quarter: 2019Q3

REPORT INFORMATION
  Report Type: Spontaneous
  Country: US (occurrence: US)
  Receive Date: 20190820
  Receipt Date: 20190820
  Transmission Date: 20191005
  Serious: Yes (Other)
  Sender: FDA-Public Use
  Company Number: US-ELI_LILLY_AND_COMPANY-US201908003765

PATIENT
  Sex: Male

DRUGS (21)
  1. SILDENAFIL. [Suspect]
     Active Substance: SILDENAFIL
     Dosage: 100 UNK
     Route: 065
     Dates: start: 20190219
  2. GABAPENTIN. [Concomitant]
     Active Substance: GABAPENTIN
     Indication: NEUROPATHY PERIPHERAL
     Dosage: UNK, UNKNOWN
     Route: 065
     Dates: start: 20160617
  3. ALPRAZOLAM. [Concomitant]
     Active Substance: ALPRAZOLAM
     Indication: PRODUCT USED FOR UNKNOWN INDICATION
     Dosage: UNK UNK, UNKNOWN
     Route: 065
     Dates: start: 20140709, end: 20150921
  4. VIAGRA [Suspect]
     Active Substance: SILDENAFIL CITRATE
     Indication: ERECTILE DYSFUNCTION
     Dosage: 100 MG, PRN
     Route: 065
     Dates: start: 20050529, end: 20140112
  5. AMLODIPINE [Concomitant]
     Active Substance: AMLODIPINE BESYLATE
     Indication: HYPERTENSION
     Dosage: UNK UNK, UNKNOWN
     Route: 065
     Dates: start: 20150226
  6. PRAMIPEXOLE. [Concomitant]
     Active Substance: PRAMIPEXOLE
     Indication: RESTLESS LEGS SYNDROME
     Dosage: UNK UNK, UNKNOWN
     Route: 065
     Dates: start: 20160402
  7. LOSARTAN. [Concomitant]
     Active Substance: LOSARTAN
     Indication: CHRONIC KIDNEY DISEASE
     Dosage: UNK UNK, UNKNOWN
     Route: 065
     Dates: start: 20150108, end: 20180422
  8. LABETALOL [Concomitant]
     Active Substance: LABETALOL\LABETALOL HYDROCHLORIDE
     Indication: HYPERTENSION
     Dosage: UNK UNK, UNKNOWN
     Route: 065
     Dates: start: 20131231, end: 20140911
  9. LEVITRA [Concomitant]
     Active Substance: VARDENAFIL HYDROCHLORIDE
     Dosage: 20 MG, PRN
     Route: 065
     Dates: start: 20110816, end: 20121231
  10. FUROSEMIDE. [Concomitant]
     Active Substance: FUROSEMIDE
     Indication: CHRONIC KIDNEY DISEASE
     Dosage: UNK UNK, UNKNOWN
     Route: 065
     Dates: start: 20140103
  11. ISOSORBIDE. [Concomitant]
     Active Substance: ISOSORBIDE
     Indication: PROPHYLAXIS
     Dosage: UNK UNK, UNKNOWN
     Route: 065
     Dates: start: 20141217, end: 20190205
  12. VITAMIN D2 [Concomitant]
     Active Substance: ERGOCALCIFEROL
     Indication: SUPPLEMENTATION THERAPY
     Dosage: UNK UNK, UNKNOWN
     Route: 065
  13. BUMETANIDE. [Concomitant]
     Active Substance: BUMETANIDE
     Indication: CHRONIC KIDNEY DISEASE
     Dosage: UNK UNK, UNKNOWN
     Route: 065
     Dates: start: 20160209, end: 20170727
  14. OXYCODONE [Concomitant]
     Active Substance: OXYCODONE
     Indication: PRODUCT USED FOR UNKNOWN INDICATION
     Dosage: UNK UNK, UNKNOWN
     Route: 065
     Dates: start: 20150216, end: 20150301
  15. ROSUVASTATIN. [Concomitant]
     Active Substance: ROSUVASTATIN
     Indication: HYPERLIPIDAEMIA
     Dosage: UNK, UNKNOWN
     Route: 065
  16. FLUOXETINE [Concomitant]
     Active Substance: FLUOXETINE HYDROCHLORIDE
     Indication: DEPRESSION
     Dosage: UNK UNK, UNKNOWN
     Route: 065
     Dates: start: 20150402, end: 20180321
  17. CIALIS [Suspect]
     Active Substance: TADALAFIL
     Indication: ERECTILE DYSFUNCTION
     Dosage: 5 MG, PRN
     Route: 065
     Dates: start: 20140805, end: 20140904
  18. SILDENAFIL. [Suspect]
     Active Substance: SILDENAFIL
     Indication: ERECTILE DYSFUNCTION
     Dosage: 50 MG, PRN
     Route: 065
     Dates: start: 20181014, end: 20181114
  19. LEVITRA [Concomitant]
     Active Substance: VARDENAFIL HYDROCHLORIDE
     Indication: ERECTILE DYSFUNCTION
     Dosage: 20 MG, PRN
     Route: 065
     Dates: start: 20070705, end: 20071231
  20. TAMSULOSIN [Concomitant]
     Active Substance: TAMSULOSIN
     Indication: BENIGN PROSTATIC HYPERPLASIA
     Dosage: 0.4 MG, DAILY
     Route: 065
     Dates: start: 20140220, end: 20140603
  21. CARVEDILOL. [Concomitant]
     Active Substance: CARVEDILOL
     Indication: CHRONIC KIDNEY DISEASE
     Dosage: UNK, UNKNOWN
     Route: 065
     Dates: start: 20140828

REACTIONS (4)
  - Actinic keratosis [Recovered/Resolved]
  - Malignant melanoma [Recovered/Resolved]
  - Basal cell carcinoma [Recovered/Resolved]
  - Coronary artery disease [Unknown]

NARRATIVE: CASE EVENT DATE: 20140113
